FAERS Safety Report 8092831-4 (Version None)
Quarter: 2012Q1

REPORT INFORMATION
  Report Type: 
  Country: None (occurrence: None)
  Receive Date: 20120130
  Receipt Date: 20120130
  Transmission Date: 20120608
  Serious: Yes (Life-Threatening, Hospitalization)
  Sender: FDA-Public Use
  Company Number: None

PATIENT
  Age: 61 Year
  Sex: Male
  Weight: 77.5 kg

DRUGS (1)
  1. DIGOXIN [Suspect]
     Indication: ATRIAL FIBRILLATION
     Dosage: 0.25 MG EVERY DAY PO
     Route: 048
     Dates: start: 20111101, end: 20120110

REACTIONS (11)
  - RENAL FAILURE ACUTE [None]
  - DIZZINESS [None]
  - HEPATORENAL SYNDROME [None]
  - DECREASED APPETITE [None]
  - BLOOD POTASSIUM INCREASED [None]
  - TOXICITY TO VARIOUS AGENTS [None]
  - ARRHYTHMIA [None]
  - VOMITING [None]
  - BRADYCARDIA [None]
  - NAUSEA [None]
  - NODAL RHYTHM [None]
